FAERS Safety Report 19275448 (Version 1)
Quarter: 2021Q2

REPORT INFORMATION
  Report Type: Spontaneous
  Country: US (occurrence: US)
  Receive Date: 20210519
  Receipt Date: 20210519
  Transmission Date: 20210717
  Serious: Yes (Other)
  Sender: FDA-Public Use
  Company Number: US-MYLANLABS-2021M1029271

PATIENT
  Age: 17 Month
  Sex: Female

DRUGS (9)
  1. VORINOSTAT [Suspect]
     Active Substance: VORINOSTAT
     Indication: ACUTE MEGAKARYOCYTIC LEUKAEMIA
     Dosage: SECOND COURSE
     Route: 065
  2. ETOPOSIDE. [Suspect]
     Active Substance: ETOPOSIDE
     Indication: ACUTE MEGAKARYOCYTIC LEUKAEMIA
     Dosage: INDUCTION THERAPY
     Route: 065
  3. DAUNORUBICIN [Suspect]
     Active Substance: DAUNORUBICIN
     Indication: ACUTE MEGAKARYOCYTIC LEUKAEMIA
     Dosage: INDUCTION THERAPY
     Route: 065
  4. GEMTUZUMAB OZOGAMICIN [Suspect]
     Active Substance: GEMTUZUMAB OZOGAMICIN
     Indication: ACUTE MEGAKARYOCYTIC LEUKAEMIA
     Dosage: INDUCTION THERAPY AND SECOND COURSE
     Route: 065
  5. FLUDARABINE [Suspect]
     Active Substance: FLUDARABINE PHOSPHATE
     Indication: ACUTE MEGAKARYOCYTIC LEUKAEMIA
     Dosage: SECOND COURSE
     Route: 065
  6. DECITABINE. [Suspect]
     Active Substance: DECITABINE
     Indication: ACUTE MEGAKARYOCYTIC LEUKAEMIA
     Dosage: SECOND COURSE
     Route: 065
  7. IDARUBICIN [Suspect]
     Active Substance: IDARUBICIN
     Indication: ACUTE MEGAKARYOCYTIC LEUKAEMIA
     Dosage: SECOND COURSE, HIGH DOSE
     Route: 065
  8. CYTARABINE. [Suspect]
     Active Substance: CYTARABINE
     Indication: ACUTE MEGAKARYOCYTIC LEUKAEMIA
     Dosage: INDUCTION THERAPY AND...
     Route: 065
  9. CYTARABINE. [Suspect]
     Active Substance: CYTARABINE
     Dosage: UNK
     Route: 037

REACTIONS (1)
  - Drug ineffective [Unknown]
